FAERS Safety Report 8368271-7 (Version None)
Quarter: 2012Q2

REPORT INFORMATION
  Report Type: 
  Country: None (occurrence: None)
  Receive Date: 20120517
  Receipt Date: 20120509
  Transmission Date: 20120825
  Serious: Yes (Other)
  Sender: FDA-Public Use
  Company Number: ES-BAYER-2012-046050

PATIENT
  Age: 26 Year
  Sex: Female

DRUGS (3)
  1. YASMIN [Suspect]
     Dosage: UNK
     Dates: start: 20070101
  2. IRON SUPPLEMENT [Concomitant]
  3. FOLIC ACID [Concomitant]

REACTIONS (2)
  - COELIAC DISEASE [None]
  - ALOPECIA [None]
